FAERS Safety Report 16085317 (Version 1)
Quarter: 2019Q2

REPORT INFORMATION
  Report Type: Spontaneous
  Country: US (occurrence: US)
  Receive Date: 20190318
  Receipt Date: 20190318
  Transmission Date: 20190711
  Serious: Yes (Disabling)
  Sender: FDA-Public Use
  Company Number: None

PATIENT
  Age: 58 Year
  Sex: Female
  Weight: 109.35 kg

DRUGS (1)
  1. CLONAZEPAM 1 MG BY TEVA [Suspect]
     Active Substance: CLONAZEPAM
     Indication: BIPOLAR DISORDER
     Dosage: ?          QUANTITY:1 TABLET(S);?
     Route: 048
     Dates: start: 20190301, end: 20190303

REACTIONS (4)
  - Product substitution issue [None]
  - Anxiety [None]
  - Depressed mood [None]
  - Insomnia [None]

NARRATIVE: CASE EVENT DATE: 20190301
